FAERS Safety Report 9682239 (Version 1)
Quarter: 2013Q4

REPORT INFORMATION
  Report Type: Spontaneous
  Country: CO (occurrence: CO)
  Receive Date: 20131112
  Receipt Date: 20131112
  Transmission Date: 20140711
  Serious: Yes (Other)
  Sender: FDA-Public Use
  Company Number: CO-009507513-1311COL003506

PATIENT
  Age: 54 Year
  Sex: Female

DRUGS (4)
  1. PEGINTERFERON ALFA-2B [Suspect]
     Indication: HEPATITIS C
     Dosage: 80 MICROGRAM, QW, REDIPEN (PREFILLED PENS)
     Route: 058
     Dates: start: 20130902
  2. VICTRELIS [Suspect]
     Indication: HEPATITIS C
     Dosage: 800 MG, QD
     Route: 048
     Dates: start: 20130902
  3. REBETOL [Suspect]
  4. GRANULOCYTE COLONY STIMULATING FACTOR (UNSPECIFIED) [Concomitant]
     Dosage: 300 MICROGRAM, QW
     Dates: start: 20131006

REACTIONS (1)
  - Pancytopenia [Not Recovered/Not Resolved]
